FAERS Safety Report 18922775 (Version 4)
Quarter: 2021Q4

REPORT INFORMATION
  Report Type: Spontaneous
  Country: US (occurrence: US)
  Receive Date: 20210222
  Receipt Date: 20211129
  Transmission Date: 20220304
  Serious: Yes (Hospitalization, Other)
  Sender: FDA-Public Use
  Company Number: US-PFIZER INC-2019538078

PATIENT
  Age: 61 Year
  Sex: Female

DRUGS (32)
  1. FRAGMIN [Suspect]
     Active Substance: DALTEPARIN SODIUM
     Dosage: 0.6 ML, DAILY
     Route: 058
     Dates: start: 20160126, end: 20210330
  2. FRAGMIN [Suspect]
     Active Substance: DALTEPARIN SODIUM
     Dosage: UNK
     Dates: start: 20190918
  3. HYDROCHLOROTHIAZIDE\SPIRONOLACTONE [Concomitant]
     Active Substance: HYDROCHLOROTHIAZIDE\SPIRONOLACTONE
     Dosage: 50 MG, 1X/DAY
     Route: 048
     Dates: start: 20190524
  4. ALPRAZOLAM [Concomitant]
     Active Substance: ALPRAZOLAM
     Dosage: 1 MG, 2X/DAY
     Route: 048
     Dates: start: 20190524
  5. ATORVASTATIN [Concomitant]
     Active Substance: ATORVASTATIN
     Dosage: 80 MG, 1X/DAY
     Route: 048
     Dates: start: 20190524
  6. AMOXICILLIN\CLAVULANIC ACID [Concomitant]
     Active Substance: AMOXICILLIN\CLAVULANIC ACID
     Dosage: UNK, 2X/DAY
     Dates: start: 20210302
  7. BONIVA [Concomitant]
     Active Substance: IBANDRONATE SODIUM
     Dosage: 150 MG, 1X/DAY
     Route: 048
     Dates: start: 20190524
  8. CRESTOR [Concomitant]
     Active Substance: ROSUVASTATIN CALCIUM
     Dosage: 40 MG, 1X/DAY
     Route: 048
     Dates: start: 20190918
  9. EMPAGLIFLOZIN [Concomitant]
     Active Substance: EMPAGLIFLOZIN
     Dosage: 25 MG, 1X/DAY
     Route: 048
     Dates: start: 20190524
  10. ENOXAPARIN [Concomitant]
     Active Substance: ENOXAPARIN
     Dosage: 25 MG, 1X/DAY
     Route: 058
     Dates: start: 20190507
  11. EZETIMIBE [Concomitant]
     Active Substance: EZETIMIBE
     Dosage: 10 ML, 1X/DAY
     Route: 048
     Dates: start: 20190918
  12. FLUOROURACIL [Concomitant]
     Active Substance: FLUOROURACIL
     Dosage: UNK UNK, 3X/DAY(APPLY TO AFFECTED ARED THREE TIMES A DAY)
     Route: 061
     Dates: start: 20190918
  13. IVABRADINE [Concomitant]
     Active Substance: IVABRADINE
     Dosage: 5 MG, 1X/DAY
     Route: 048
     Dates: start: 20190524
  14. IPRATROPIUM [Concomitant]
     Active Substance: IPRATROPIUM
     Dosage: 3 ML, 3X/DAY
     Route: 048
     Dates: start: 20190524
  15. JARDIANCE [Concomitant]
     Active Substance: EMPAGLIFLOZIN
     Dosage: 25 MG, 1X/DAY
     Route: 048
     Dates: start: 20190524
  16. LACTOBACILLUS ACIDOPHILUS [Concomitant]
     Active Substance: LACTOBACILLUS ACIDOPHILUS
     Dosage: 100 MG, 1X/DAY
     Route: 048
     Dates: start: 20190918
  17. LANTUS [Concomitant]
     Active Substance: INSULIN GLARGINE
     Dosage: 100 ML, 1X/DAY
     Route: 058
     Dates: start: 20190918
  18. LEVOTHYROXINE [Concomitant]
     Active Substance: LEVOTHYROXINE
     Dosage: UNK, 2X/DAY
     Route: 048
     Dates: start: 20190524
  19. LIDODERM [Concomitant]
     Active Substance: LIDOCAINE
     Dosage: UNK UNK, 1X/DAY
     Dates: start: 20190524
  20. LINZESS [Concomitant]
     Active Substance: LINACLOTIDE
     Dosage: 145 UG, 1X/DAY
     Dates: start: 20190524
  21. NADOLOL [Concomitant]
     Active Substance: NADOLOL
     Dosage: 40 MG, 1X/DAY
     Route: 048
     Dates: start: 20190524
  22. NITROFURANTOIN [Concomitant]
     Active Substance: NITROFURANTOIN
     Dosage: 100 MG, 1X/DAY
     Route: 048
     Dates: start: 20190918
  23. ONDANSETRON HYDROCHLORIDE [Concomitant]
     Active Substance: ONDANSETRON HYDROCHLORIDE
     Dosage: 4 MG (PO Q8HRS PRN NAUSEA)
     Route: 048
     Dates: start: 20210203
  24. OMEPRAZOLE [Concomitant]
     Active Substance: OMEPRAZOLE
     Dosage: 40 MG, 1X/DAY
     Route: 048
     Dates: start: 20190524
  25. PRUCALOPRIDE [Concomitant]
     Active Substance: PRUCALOPRIDE
     Dosage: 2 MG, 1X/DAY
     Route: 048
     Dates: start: 20190121
  26. REPATHA [Concomitant]
     Active Substance: EVOLOCUMAB
     Dosage: 1 ML(1ML SQ INJECTION Q.14 DAYS)
     Route: 058
     Dates: start: 20190524
  27. RESTASIS [Concomitant]
     Active Substance: CYCLOSPORINE
     Dosage: UNK (INSTILL 6 DROP INTO BOTH EYES EVERY NIGHT)
     Route: 047
     Dates: start: 20190524
  28. TORSEMIDE [Concomitant]
     Active Substance: TORSEMIDE
     Dosage: 20 MG, 1X/DAY
     Route: 048
     Dates: start: 20190524
  29. VANCOMYCIN [Concomitant]
     Active Substance: VANCOMYCIN
     Dosage: 125 MG, 1X/DAY
     Route: 048
     Dates: start: 20210302
  30. DICLOFENAC POTASSIUM [Concomitant]
     Active Substance: DICLOFENAC POTASSIUM
     Dosage: UNK UNK, 2X/DAY(APPLY TWO GRAM TOPICALLY USING MEASURING GUID TO AFFECTED AREA TWICE A DAY)
     Route: 061
     Dates: start: 20190524
  31. VITAMIN D2 [Concomitant]
     Active Substance: ERGOCALCIFEROL
     Dosage: UNK, 1X/DAY
     Route: 048
     Dates: start: 20190123
  32. XIFAXAN [Concomitant]
     Active Substance: RIFAXIMIN
     Dosage: 200 MG, 2X/DAY
     Route: 048
     Dates: start: 20190524

REACTIONS (3)
  - Thrombosis [Unknown]
  - Product dispensing error [Unknown]
  - Product distribution issue [Unknown]
